FAERS Safety Report 26040417 (Version 1)
Quarter: 2025Q4

REPORT INFORMATION
  Report Type: Spontaneous
  Country: EU (occurrence: EU)
  Receive Date: 20251113
  Receipt Date: 20251113
  Transmission Date: 20260118
  Serious: Yes (Other)
  Sender: ALEXION PHARMACEUTICALS
  Company Number: EU-ASTRAZENECA-202511GLO001305IT

PATIENT
  Age: 60 Year
  Sex: Male

DRUGS (4)
  1. OSIMERTINIB [Suspect]
     Active Substance: OSIMERTINIB
     Indication: Lung adenocarcinoma
     Dosage: 80 MILLIGRAM, QD
     Route: 065
  2. GEFITINIB [Suspect]
     Active Substance: GEFITINIB
     Indication: Lung adenocarcinoma
     Route: 065
  3. CARBOPLATIN [Concomitant]
     Active Substance: CARBOPLATIN
  4. PEMETREXED [Concomitant]
     Active Substance: PEMETREXED

REACTIONS (9)
  - Pleural effusion [Recovering/Resolving]
  - Malignant neoplasm progression [Unknown]
  - Metastases to lung [Unknown]
  - Metastases to liver [Unknown]
  - Metastases to central nervous system [Unknown]
  - Drug resistance [Unknown]
  - Skin toxicity [Unknown]
  - Treatment failure [Unknown]
  - Paronychia [Unknown]
